FAERS Safety Report 6253692-9 (Version None)
Quarter: 2009Q2

REPORT INFORMATION
  Report Type: 
  Country: None (occurrence: None)
  Receive Date: 20090630
  Receipt Date: 20090617
  Transmission Date: 20091009
  Serious: Yes (Hospitalization)
  Sender: FDA-Public Use
  Company Number: 235931K09USA

PATIENT
  Age: 55 Year
  Sex: Male
  Weight: 91 kg

DRUGS (3)
  1. REBIF [Suspect]
     Indication: MULTIPLE SCLEROSIS
     Dosage: 22 MCG, 3 IN 1 WEEKS, SUBCUTANEOUS
     Route: 058
     Dates: start: 20090404, end: 20090506
  2. LEXAPRO [Concomitant]
  3. PRIMIDONE [Concomitant]

REACTIONS (6)
  - ANOREXIA [None]
  - DIZZINESS [None]
  - DYSPHAGIA [None]
  - GAIT DISTURBANCE [None]
  - HYPOAESTHESIA FACIAL [None]
  - MULTIPLE SCLEROSIS RELAPSE [None]
